FAERS Safety Report 17148006 (Version 1)
Quarter: 2019Q4

REPORT INFORMATION
  Report Type: Spontaneous
  Country: US (occurrence: US)
  Receive Date: 20191212
  Receipt Date: 20191212
  Transmission Date: 20200122
  Serious: Yes (Hospitalization, Other)
  Sender: FDA-Public Use
  Company Number: US-ELI_LILLY_AND_COMPANY-US201912002609

PATIENT
  Sex: Male

DRUGS (3)
  1. CYMBALTA [Suspect]
     Active Substance: DULOXETINE HYDROCHLORIDE
     Indication: PRODUCT USED FOR UNKNOWN INDICATION
     Dosage: UNK, UNKNOWN
     Route: 065
  2. VALSARTAN. [Concomitant]
     Active Substance: VALSARTAN
     Indication: PRODUCT USED FOR UNKNOWN INDICATION
  3. LYRICA [Concomitant]
     Active Substance: PREGABALIN
     Indication: PAIN

REACTIONS (10)
  - Parkinson^s disease [Unknown]
  - Insomnia [Unknown]
  - Headache [Unknown]
  - Blood pressure increased [Unknown]
  - Cerebrovascular accident [Unknown]
  - Palpitations [Unknown]
  - Tremor [Unknown]
  - Somnolence [Unknown]
  - Pain [Unknown]
  - Cardiac failure [Unknown]

NARRATIVE: CASE EVENT DATE: 20191018
